FAERS Safety Report 5514495-3 (Version None)
Quarter: 2007Q4

REPORT INFORMATION
  Report Type: 
  Country: None (occurrence: None)
  Receive Date: 20071113
  Receipt Date: 20071108
  Transmission Date: 20080405
  Serious: Yes (Disabling)
  Sender: FDA-Public Use
  Company Number: A0691978A

PATIENT
  Age: 21 Year
  Sex: Female

DRUGS (1)
  1. ALLI [Suspect]
     Dates: start: 20071031, end: 20071106

REACTIONS (7)
  - ABDOMINAL DISTENSION [None]
  - DYSPEPSIA [None]
  - FAECES DISCOLOURED [None]
  - FLATULENCE [None]
  - HAEMATOCHEZIA [None]
  - RECTAL HAEMORRHAGE [None]
  - STEATORRHOEA [None]
